FAERS Safety Report 4316529-0 (Version None)
Quarter: 2004Q1

REPORT INFORMATION
  Report Type: 
  Country: None (occurrence: None)
  Receive Date: 20040310
  Receipt Date: 20040108
  Transmission Date: 20041129
  Serious: No
  Sender: FDA-Public Use
  Company Number: FROV000134

PATIENT
  Sex: Female

DRUGS (1)
  1. FROVA [Suspect]
     Indication: HEADACHE
     Dosage: 2.5 MG FOR 9 DAYS ORAL
     Route: 048

REACTIONS (1)
  - HEADACHE [None]
